FAERS Safety Report 8885925 (Version 1)
Quarter: 2012Q4

REPORT INFORMATION
  Report Type: 
  Country: FR (occurrence: FR)
  Receive Date: 20121102
  Receipt Date: 20121102
  Transmission Date: 20130627
  Serious: Yes (Hospitalization)
  Sender: FDA-Public Use
  Company Number: FR-JNJFOC-20121015768

PATIENT
  Age: 86 Year
  Sex: Male

DRUGS (9)
  1. REMINYL [Suspect]
     Indication: DEMENTIA
     Dosage: long-term
     Route: 048
     Dates: end: 20120905
  2. TAVANIC [Suspect]
     Indication: INFECTION
     Route: 048
     Dates: start: 201207, end: 20120903
  3. VESICARE [Suspect]
     Indication: URINARY INCONTINENCE
     Route: 048
     Dates: end: 20120829
  4. PAROXETINE HCL-ANHYDRAAT A [Concomitant]
     Indication: DEPRESSION
     Route: 048
  5. SOTALOL [Concomitant]
     Route: 065
  6. ALDACTONE [Concomitant]
     Route: 065
  7. SIMVASTATIN [Concomitant]
     Route: 065
  8. KARDEGIC [Concomitant]
     Route: 065
  9. RIFADINE [Concomitant]
     Indication: DEVICE RELATED INFECTION
     Route: 065
     Dates: start: 201207

REACTIONS (4)
  - Convulsion [Recovered/Resolved]
  - Aphasia [Unknown]
  - Amnesia [Unknown]
  - Urinary incontinence [Unknown]
